FAERS Safety Report 4524121-8 (Version None)
Quarter: 2005Q1

REPORT INFORMATION
  Report Type: 
  Country: None (occurrence: None)
  Receive Date: 20041119
  Receipt Date: 20040921
  Transmission Date: 20050727
  Serious: No
  Sender: FDA-Public Use
  Company Number: PHEH2004US03710

PATIENT
  Age: 82 Year
  Sex: Female

DRUGS (2)
  1. ZELNORM [Suspect]
     Indication: CONSTIPATION
     Dosage: 6 MG, BID, ORAL
     Route: 048
     Dates: start: 20031226, end: 20040103
  2. THYROID TAB [Concomitant]

REACTIONS (7)
  - ASTHENIA [None]
  - DECREASED ACTIVITY [None]
  - JOINT CONTRACTURE [None]
  - LIGAMENT DISORDER [None]
  - OEDEMA PERIPHERAL [None]
  - PAIN [None]
  - TENDON DISORDER [None]
